FAERS Safety Report 21406932 (Version 1)
Quarter: 2022Q4

REPORT INFORMATION
  Report Type: Spontaneous
  Country: US (occurrence: None)
  Receive Date: 20221004
  Receipt Date: 20221004
  Transmission Date: 20230112
  Serious: No
  Sender: FDA-Public Use
  Company Number: US-Hikma Pharmaceuticals USA Inc.-US-H14001-22-01600

PATIENT
  Sex: Male

DRUGS (3)
  1. TESTOSTERONE ENANTHATE [Suspect]
     Active Substance: TESTOSTERONE ENANTHATE
     Indication: Hypogonadism
     Route: 030
  2. TESTOSTERONE ENANTHATE [Suspect]
     Active Substance: TESTOSTERONE ENANTHATE
     Indication: Hypothalamo-pituitary disorder
     Dosage: UNKNOWN
     Route: 030
  3. TESTOSTERONE ENANTHATE [Suspect]
     Active Substance: TESTOSTERONE ENANTHATE
     Dosage: UNKNOWN
     Route: 030

REACTIONS (10)
  - Weight decreased [Unknown]
  - Eating disorder [Unknown]
  - Migraine [Unknown]
  - Product use complaint [Unknown]
  - Drug ineffective [Unknown]
  - Rash [Unknown]
  - Abscess [Unknown]
  - Pruritus [Unknown]
  - Muscle atrophy [Unknown]
  - Off label use [Unknown]
